FAERS Safety Report 13656445 (Version 2)
Quarter: 2017Q3

REPORT INFORMATION
  Report Type: Spontaneous
  Country: IT (occurrence: IT)
  Receive Date: 20170615
  Receipt Date: 20170710
  Transmission Date: 20171127
  Serious: Yes (Other)
  Sender: FDA-Public Use
  Company Number: PHHY2017IT086053

PATIENT
  Age: 65 Year
  Sex: Male
  Weight: 90 kg

DRUGS (2)
  1. SECUKINUMAB [Suspect]
     Active Substance: SECUKINUMAB
     Indication: PSORIASIS
     Dosage: 2 DF, QW
     Route: 058
     Dates: start: 20170510
  2. SECUKINUMAB [Suspect]
     Active Substance: SECUKINUMAB
     Dosage: 2 DF, QMO (EVERY FOUR WEEKS)
     Route: 058
     Dates: end: 20170524

REACTIONS (5)
  - Face oedema [Recovering/Resolving]
  - Rash maculo-papular [Recovering/Resolving]
  - Pruritus [Unknown]
  - Angioedema [Recovering/Resolving]
  - Skin lesion [Recovering/Resolving]

NARRATIVE: CASE EVENT DATE: 20170526
